FAERS Safety Report 4734332-4 (Version None)
Quarter: 2005Q3

REPORT INFORMATION
  Report Type: 
  Country: None (occurrence: None)
  Receive Date: 20050804
  Receipt Date: 20050629
  Transmission Date: 20060218
  Serious: Yes (Hospitalization)
  Sender: FDA-Public Use
  Company Number: AU-BOEHRINGER INGELHEIM PHARMACEUTICALS, INC.-2005-BP-11033AU

PATIENT
  Sex: Male
  Weight: 81 kg

DRUGS (3)
  1. MOBIC [Suspect]
     Indication: OSTEOARTHRITIS
     Route: 048
     Dates: start: 20031101, end: 20050606
  2. ASPIRIN [Suspect]
     Route: 048
     Dates: end: 20050606
  3. AVAPRO 300/12.5MG (IRBESARTAN/HYDROCHLORTHIAZIDE) [Concomitant]
     Indication: HYPERTENSION
     Dosage: 300/12.5 MG/MG
     Route: 048
     Dates: start: 20030427

REACTIONS (3)
  - ANAEMIA [None]
  - GASTRIC ULCER [None]
  - GASTRITIS [None]
